FAERS Safety Report 4412148-6 (Version None)
Quarter: 2004Q2

REPORT INFORMATION
  Report Type: 
  Country: None (occurrence: None)
  Receive Date: 20040630
  Receipt Date: 20040419
  Transmission Date: 20050107
  Serious: No
  Sender: FDA-Public Use
  Company Number: 04P-163-0257860-00

PATIENT
  Age: 56 Year
  Sex: Female
  Weight: 54.4316 kg

DRUGS (10)
  1. HUMIRA [Suspect]
     Indication: RHEUMATOID ARTHRITIS
     Dosage: 40 MG, 1 IN 2 WK, SUBCUTANEOUS
     Route: 058
     Dates: start: 20040413
  2. METHOTREXATE SODIUM [Concomitant]
  3. PREDNISONE [Concomitant]
  4. LEXAPRO [Concomitant]
  5. RABEPRAZOLE SODIUM [Concomitant]
  6. LOVASTATIN [Concomitant]
  7. LISINOPRIL [Concomitant]
  8. ETANERCEPT [Concomitant]
  9. ALENDRONATE SODIUM [Concomitant]
  10. ALPRAZOLAM [Concomitant]

REACTIONS (1)
  - INJECTION SITE BURNING [None]
